FAERS Safety Report 24601886 (Version 3)
Quarter: 2025Q1

REPORT INFORMATION
  Report Type: Spontaneous
  Country: KR (occurrence: KR)
  Receive Date: 20241111
  Receipt Date: 20250121
  Transmission Date: 20250409
  Serious: No
  Sender: REGENERON
  Company Number: KR-BAYER-2024A159130

PATIENT
  Age: 80 Year
  Sex: Female

DRUGS (1)
  1. EYLEA [Suspect]
     Active Substance: AFLIBERCEPT
     Indication: Product used for unknown indication

REACTIONS (3)
  - Visual impairment [Unknown]
  - Eye inflammation [Unknown]
  - Eye inflammation [Unknown]

NARRATIVE: CASE EVENT DATE: 20241031
